FAERS Safety Report 12144028 (Version 1)
Quarter: 2016Q1

REPORT INFORMATION
  Report Type: Spontaneous
  Country: US (occurrence: US)
  Receive Date: 20160304
  Receipt Date: 20160304
  Transmission Date: 20160526
  Serious: Yes (Other)
  Sender: FDA-Public Use
  Company Number: US-ROCHE-1718002

PATIENT
  Sex: Female

DRUGS (7)
  1. KLONOPIN [Suspect]
     Active Substance: CLONAZEPAM
     Indication: POST-TRAUMATIC STRESS DISORDER
     Route: 065
     Dates: start: 200608
  2. KLONOPIN [Suspect]
     Active Substance: CLONAZEPAM
     Indication: PANIC ATTACK
  3. KLONOPIN [Suspect]
     Active Substance: CLONAZEPAM
     Indication: BIPOLAR DISORDER
  4. KLONOPIN [Suspect]
     Active Substance: CLONAZEPAM
     Indication: OBSESSIVE-COMPULSIVE DISORDER
  5. GABAPENTIN. [Concomitant]
     Active Substance: GABAPENTIN
     Route: 065
  6. PROPANOLOL [Concomitant]
     Active Substance: PROPRANOLOL HYDROCHLORIDE
     Route: 065
  7. NORTRIPTYLINE [Concomitant]
     Active Substance: NORTRIPTYLINE
     Route: 065

REACTIONS (13)
  - Fibromyalgia [Unknown]
  - Pain [Recovered/Resolved]
  - Influenza [Unknown]
  - Arthralgia [Unknown]
  - Weight increased [Unknown]
  - Dysstasia [Unknown]
  - Confusional state [Unknown]
  - Muscle twitching [Unknown]
  - Muscle spasms [Unknown]
  - Myalgia [Unknown]
  - Drug intolerance [Unknown]
  - Weight decreased [Unknown]
  - Nausea [Unknown]
